FAERS Safety Report 5155117-3 (Version None)
Quarter: 2006Q4

REPORT INFORMATION
  Report Type: 
  Country: None (occurrence: None)
  Receive Date: 20061120
  Receipt Date: 20061120
  Transmission Date: 20070319
  Serious: Yes (Hospitalization)
  Sender: FDA-Public Use
  Company Number: None

PATIENT
  Age: 34 Year
  Sex: Female
  Weight: 73.4827 kg

DRUGS (1)
  1. VANCOMYCIN 100 MG HOSPIRA [Suspect]
     Indication: WOUND INFECTION STAPHYLOCOCCAL
     Dosage: 1250 MG   Q 12 HRS   IV DRIP
     Route: 041
     Dates: start: 20061103, end: 20061113

REACTIONS (6)
  - BAND NEUTROPHIL COUNT INCREASED [None]
  - ERYTHEMA [None]
  - FLUSHING [None]
  - MUSCULOSKELETAL STIFFNESS [None]
  - PAIN [None]
  - PYREXIA [None]
